FAERS Safety Report 6227057-X (Version None)
Quarter: 2009Q2

REPORT INFORMATION
  Report Type: 
  Country: None (occurrence: None)
  Receive Date: 20090612
  Receipt Date: 20090527
  Transmission Date: 20091009
  Serious: No
  Sender: FDA-Public Use
  Company Number: US-ABBOTT-09P-163-0576116-00

PATIENT
  Sex: Male
  Weight: 92.616 kg

DRUGS (11)
  1. HUMIRA [Suspect]
     Indication: CROHN'S DISEASE
     Dosage: 160 MG
     Dates: start: 20090527
  2. COLAZAL [Concomitant]
     Indication: DRUG USE FOR UNKNOWN INDICATION
  3. SUCRALFATE [Concomitant]
     Indication: DRUG USE FOR UNKNOWN INDICATION
  4. RANIDINE [Concomitant]
     Indication: GASTRIC DISORDER
  5. FOLIC ACID [Concomitant]
     Indication: DRUG USE FOR UNKNOWN INDICATION
  6. SLOW FE [Concomitant]
     Indication: DRUG USE FOR UNKNOWN INDICATION
  7. CALCIUM [Concomitant]
     Indication: DRUG USE FOR UNKNOWN INDICATION
  8. CALTRATE [Concomitant]
     Indication: DRUG USE FOR UNKNOWN INDICATION
  9. BUSPAR [Concomitant]
     Indication: DRUG USE FOR UNKNOWN INDICATION
     Dosage: 1/2 BID 7.5/DAY
  10. SALAGEN [Concomitant]
     Indication: DRUG USE FOR UNKNOWN INDICATION
  11. JUICE PLUS [Concomitant]
     Indication: DRUG USE FOR UNKNOWN INDICATION

REACTIONS (1)
  - FREQUENT BOWEL MOVEMENTS [None]
